FAERS Safety Report 26208354 (Version 1)
Quarter: 2025Q4

REPORT INFORMATION
  Report Type: Spontaneous
  Country: US (occurrence: None)
  Receive Date: 20251228
  Receipt Date: 20251228
  Transmission Date: 20260118
  Serious: Yes (Other)
  Sender: FDA-CTU
  Company Number: None

PATIENT
  Age: 63 Year
  Sex: Female

DRUGS (5)
  1. NUCALA [Suspect]
     Active Substance: MEPOLIZUMAB
     Indication: Asthma
     Route: 058
     Dates: start: 20250204
  2. BENAZEPRIL TAB 10MG [Concomitant]
  3. CARBAMAZEPINE [Concomitant]
     Active Substance: CARBAMAZEPINE
  4. DIVALPROEX SODIUM [Concomitant]
     Active Substance: DIVALPROEX SODIUM
  5. LEVOTHYROXIN TAB 75MCG [Concomitant]

REACTIONS (3)
  - Patella fracture [None]
  - Osteoporosis [None]
  - Impaired quality of life [None]

NARRATIVE: CASE EVENT DATE: 20251201
